FAERS Safety Report 5291152-2 (Version None)
Quarter: 2007Q2

REPORT INFORMATION
  Report Type: 
  Country: None (occurrence: None)
  Receive Date: 20070409
  Receipt Date: 20070330
  Transmission Date: 20071010
  Serious: Yes (Other)
  Sender: FDA-Public Use
  Company Number: GB-ELI_LILLY_AND_COMPANY-GB200704000162

PATIENT
  Age: 80 Year
  Sex: Male
  Weight: 70 kg

DRUGS (2)
  1. GEMCITABINE HCL [Suspect]
     Indication: BLADDER CANCER
     Dosage: 186 MG, WEEKLY (1/W)
     Route: 042
     Dates: start: 20050221, end: 20050314
  2. *RADIATION [Suspect]
     Indication: BLADDER CANCER
     Dosage: UNK, WEEKLY (1/W)
     Dates: start: 20050221, end: 20050314

REACTIONS (3)
  - DIVERTICULUM [None]
  - LARGE INTESTINAL STRICTURE [None]
  - TELANGIECTASIA [None]
